FAERS Safety Report 5648217-2 (Version None)
Quarter: 2008Q1

REPORT INFORMATION
  Report Type: 
  Country: None (occurrence: None)
  Receive Date: 20080229
  Receipt Date: 20080221
  Transmission Date: 20080703
  Serious: Yes (Other)
  Sender: FDA-Public Use
  Company Number: SPV1-2008-00378

PATIENT
  Age: 6 Year
  Sex: Male

DRUGS (1)
  1. VYVANSE(LISDEXAMFEAMINE DIMESYLATE) CAPSULE [Suspect]

REACTIONS (1)
  - SUICIDAL IDEATION [None]
